FAERS Safety Report 4321209-1 (Version None)
Quarter: 2004Q1

REPORT INFORMATION
  Report Type: 
  Country: None (occurrence: None)
  Receive Date: 20040323
  Receipt Date: 20040316
  Transmission Date: 20041129
  Serious: Yes (Hospitalization)
  Sender: FDA-Public Use
  Company Number: PHRM2004FR01249

PATIENT
  Age: 36 Year
  Sex: Male

DRUGS (5)
  1. TRILEPTAL [Suspect]
     Indication: EPILEPSY
     Dosage: 1.8 G DAILY
     Route: 048
  2. XANAX [Suspect]
     Route: 048
  3. TOPIRAMATE [Suspect]
     Dosage: 1 DF, QD
     Route: 048
  4. STABLON [Suspect]
     Route: 048
  5. AVLOCARDYL [Suspect]
     Dosage: UNK, UNK
     Route: 048

REACTIONS (1)
  - AZOOSPERMIA [None]
